FAERS Safety Report 7141264-3 (Version None)
Quarter: 2010Q4

REPORT INFORMATION
  Report Type: 
  Country: None (occurrence: None)
  Receive Date: 20101207
  Receipt Date: 20101202
  Transmission Date: 20110411
  Serious: Yes (Hospitalization)
  Sender: FDA-Public Use
  Company Number: US-BRISTOL-MYERS SQUIBB COMPANY-15418270

PATIENT
  Age: 40 Year
  Sex: Male

DRUGS (3)
  1. ABILIFY [Suspect]
     Dosage: 15MG DOSE INCREASED TO 20MG DURATION:1.5- 2 MONTHS
  2. NEURONTIN [Concomitant]
  3. REMERON [Concomitant]

REACTIONS (2)
  - COMA [None]
  - TORTICOLLIS [None]
